FAERS Safety Report 6444164-7 (Version None)
Quarter: 2009Q4

REPORT INFORMATION
  Report Type: 
  Country: None (occurrence: None)
  Receive Date: 20091118
  Receipt Date: 20091112
  Transmission Date: 20100525
  Serious: Yes (Other)
  Sender: FDA-Public Use
  Company Number: US-WYE-H11520709

PATIENT

DRUGS (4)
  1. PRISTIQ [Suspect]
     Dosage: 50 MG, UNSPECIFIED FREQUENCY
  2. LAMICTAL [Suspect]
     Dosage: 100 MG UNSPECIFIED FREQUENCY AND BEING INCREASED TO 200 MG
  3. OLANZAPINE [Suspect]
     Dosage: UNKNOWN
  4. ELAVIL [Suspect]
     Dosage: 50 MG, UNSPECIFIED FREQUENCY

REACTIONS (1)
  - CARDIOVASCULAR DISORDER [None]
